FAERS Safety Report 7270670-1 (Version None)
Quarter: 2011Q1

REPORT INFORMATION
  Report Type: 
  Country: None (occurrence: None)
  Receive Date: 20110202
  Receipt Date: 20110126
  Transmission Date: 20110831
  Serious: Yes (Other)
  Sender: FDA-Public Use
  Company Number: A0911234A

PATIENT
  Sex: Male

DRUGS (9)
  1. PRISTIQ [Concomitant]
  2. PAXIL CR [Suspect]
     Route: 065
     Dates: start: 20020901, end: 20101201
  3. CYMBALTA [Concomitant]
  4. GLUCOPHAGE [Concomitant]
  5. NSAIDS [Concomitant]
  6. PAXIL [Suspect]
     Route: 065
     Dates: start: 20020901, end: 20101201
  7. LIPITOR [Concomitant]
  8. UNSPECIFIED MEDICATION [Concomitant]
  9. PROZAC [Concomitant]

REACTIONS (33)
  - DISTURBANCE IN ATTENTION [None]
  - DYSPEPSIA [None]
  - DIZZINESS [None]
  - OPTIC NERVE DISORDER [None]
  - GAIT DISTURBANCE [None]
  - BONE DENSITY DECREASED [None]
  - GASTROINTESTINAL DISORDER [None]
  - AORTIC ANEURYSM [None]
  - HYPOAESTHESIA [None]
  - DEPRESSION [None]
  - ADVERSE EVENT [None]
  - PERIPHERAL ARTERIAL OCCLUSIVE DISEASE [None]
  - ARTHRALGIA [None]
  - CEREBROVASCULAR ACCIDENT [None]
  - MEMORY IMPAIRMENT [None]
  - MUSCULAR WEAKNESS [None]
  - BONE DISORDER [None]
  - COAGULOPATHY [None]
  - AMNESIA [None]
  - ANOSMIA [None]
  - VISION BLURRED [None]
  - ARTERIAL DISORDER [None]
  - HEMIPLEGIA [None]
  - AGEUSIA [None]
  - DIABETES MELLITUS [None]
  - HYPERTENSION [None]
  - MIGRAINE WITH AURA [None]
  - ARTHROPATHY [None]
  - GASTRIC DISORDER [None]
  - CHEST PAIN [None]
  - DYSPNOEA [None]
  - MUSCULOSKELETAL PAIN [None]
  - BACK PAIN [None]
